FAERS Safety Report 8169048-8 (Version None)
Quarter: 2012Q1

REPORT INFORMATION
  Report Type: 
  Country: None (occurrence: None)
  Receive Date: 20120227
  Receipt Date: 20120221
  Transmission Date: 20120608
  Serious: No
  Sender: FDA-Public Use
  Company Number: US-PFIZER INC-2012046148

PATIENT
  Sex: Male
  Weight: 133.33 kg

DRUGS (16)
  1. CARVEDILOL [Concomitant]
     Indication: HYPERTENSION
     Dosage: UNK
  2. RANITIDINE [Concomitant]
     Dosage: UNK
  3. ACETYLSALICYLIC ACID [Concomitant]
     Dosage: UNK
  4. ASCORBIC ACID [Concomitant]
     Dosage: UNK
  5. LISINOPRIL [Concomitant]
     Dosage: UNK
  6. IRON [Concomitant]
     Dosage: UNK
  7. AMLODIPINE [Concomitant]
     Dosage: UNK
  8. TIKOSYN [Concomitant]
     Dosage: UNK
  9. ACIDOPHILUS [Concomitant]
     Indication: MACULAR DEGENERATION
     Dosage: UNK
  10. ECHINACEA [Concomitant]
     Dosage: 250 MG, UNK
  11. MULTI-VITAMINS [Concomitant]
     Dosage: UNK
  12. CELEBREX [Suspect]
     Indication: OSTEOARTHRITIS
     Dosage: 200 MG, 1X/DAY
     Route: 048
     Dates: end: 20120201
  13. TRAZODONE [Concomitant]
     Dosage: UNK
  14. OMEPRAZOLE [Concomitant]
     Dosage: UNK
  15. ZINC [Concomitant]
     Dosage: UNK
  16. BENADRYL [Concomitant]
     Dosage: UNK

REACTIONS (3)
  - ABDOMINAL DISCOMFORT [None]
  - DRUG INEFFECTIVE [None]
  - VOMITING [None]
